FAERS Safety Report 20063558 (Version 2)
Quarter: 2021Q4

REPORT INFORMATION
  Report Type: Spontaneous
  Country: PL (occurrence: PL)
  Receive Date: 20211112
  Receipt Date: 20211203
  Transmission Date: 20220304
  Serious: Yes (Other)
  Sender: FDA-Public Use
  Company Number: PL-BAYER-2021A245574

PATIENT

DRUGS (2)
  1. EYLEA [Suspect]
     Active Substance: AFLIBERCEPT
     Indication: Neovascular age-related macular degeneration
     Route: 031
  2. RANIBIZUMAB [Concomitant]
     Active Substance: RANIBIZUMAB
     Indication: Product used for unknown indication

REACTIONS (2)
  - Subretinal fluid [Unknown]
  - Therapeutic product effect incomplete [Unknown]
